FAERS Safety Report 15245424 (Version 17)
Quarter: 2020Q3

REPORT INFORMATION
  Report Type: Report from Study
  Country: None (occurrence: PL)
  Receive Date: 20180806
  Receipt Date: 20200827
  Transmission Date: 20201102
  Serious: Yes (Hospitalization, Other)
  Sender: FDA-Public Use
  Company Number: PL-ABBVIE-18P-129-2407306-00

PATIENT
  Age: 67 Year
  Sex: Male
  Weight: 100.8 kg

DRUGS (33)
  1. VENETOCLAX. [Suspect]
     Active Substance: VENETOCLAX
     Dosage: PRIOR TO 1 ANEMIA/3  NEUTROPENIA 30JUL2018
     Route: 048
  2. COBIMETINIB. [Suspect]
     Active Substance: COBIMETINIB
     Indication: PLASMA CELL MYELOMA
     Dosage: D1?21 OF 28 D C, DOSE P/T AE 19JUN2018, 22JUN2018
     Route: 048
     Dates: start: 20180605, end: 20180622
  3. INSULIN GLULISINE [Concomitant]
     Active Substance: INSULIN GLULISINE
     Route: 058
     Dates: start: 2007
  4. HEVIRAN [Concomitant]
     Active Substance: ACYCLOVIR
     Route: 042
     Dates: start: 20180913, end: 20180917
  5. HEVIRAN [Concomitant]
     Active Substance: ACYCLOVIR
     Route: 048
     Dates: start: 20180903
  6. ALLOPURINOL. [Concomitant]
     Active Substance: ALLOPURINOL
     Indication: PROPHYLAXIS
     Route: 048
     Dates: start: 20180605
  7. VENETOCLAX. [Suspect]
     Active Substance: VENETOCLAX
     Dosage: RECENT DOSE PRIOR 4 NEUTROPENIA 02OCT2018/ P/T SAE:22OCT2018
     Route: 048
  8. TAMSULOSINI HYDROCHLORIDUM [Concomitant]
     Indication: BENIGN PROSTATIC HYPERPLASIA
     Route: 048
     Dates: start: 2011
  9. HEVIRAN [Concomitant]
     Active Substance: ACYCLOVIR
     Indication: HERPES ZOSTER
     Route: 048
     Dates: start: 20180828, end: 20180912
  10. HEVIRAN [Concomitant]
     Active Substance: ACYCLOVIR
     Route: 048
     Dates: start: 20180918, end: 20181002
  11. LOPERAMIDE HYDROCHLORIDE. [Concomitant]
     Active Substance: LOPERAMIDE HYDROCHLORIDE
     Route: 048
     Dates: start: 20180614, end: 20180717
  12. SULFAMETHOXAZOLE, TRIMETHOPRIM [Concomitant]
     Active Substance: SULFAMETHOXAZOLE\TRIMETHOPRIM
     Indication: PROPHYLAXIS
     Route: 048
     Dates: start: 20180605
  13. KALIPOZ [Concomitant]
     Active Substance: POTASSIUM CHLORIDE
     Indication: HYPOKALAEMIA
     Route: 048
     Dates: start: 20180624, end: 20180626
  14. COBIMETINIB. [Suspect]
     Active Substance: COBIMETINIB
     Dosage: PRIOR TO 1 ANEMIA/3 NEUTROPNIA 27AUG2018/4 NEUTROPNIA 02OCT2018/SAE: 22OCT2018
     Route: 048
  15. METFORMIN HYDROCHLORIDE. [Concomitant]
     Active Substance: METFORMIN HYDROCHLORIDE
     Indication: DIABETES MELLITUS
     Route: 048
     Dates: start: 2008
  16. HEVIRAN [Concomitant]
     Active Substance: ACYCLOVIR
     Indication: PROPHYLAXIS
     Route: 048
     Dates: start: 20180605
  17. OXYCORT [Concomitant]
     Indication: SEBORRHOEA
     Route: 062
     Dates: start: 20180614, end: 20180617
  18. CAPTOPRILUM [Concomitant]
     Indication: HYPERTENSION
     Route: 048
     Dates: start: 20180624, end: 20180624
  19. KALII CHLORIDUM [Concomitant]
     Indication: BLOOD POTASSIUM DECREASED
     Route: 048
     Dates: start: 20180624, end: 20180626
  20. LOPERAMIDE HYDROCHLORIDE. [Concomitant]
     Active Substance: LOPERAMIDE HYDROCHLORIDE
     Route: 048
     Dates: start: 20180607, end: 20180607
  21. DALACIN T [Concomitant]
     Active Substance: CLINDAMYCIN PHOSPHATE
     Indication: SEBORRHOEA
     Route: 062
     Dates: start: 20180614, end: 20180717
  22. ETAMSYLATE [Concomitant]
     Active Substance: ETHAMSYLATE
     Route: 048
     Dates: start: 20180731, end: 20180802
  23. FINASTERIDE. [Concomitant]
     Active Substance: FINASTERIDE
     Indication: BENIGN PROSTATIC HYPERPLASIA
     Route: 048
     Dates: start: 2011
  24. INSULIN GLULISINE [Concomitant]
     Active Substance: INSULIN GLULISINE
     Indication: DIABETES MELLITUS
     Route: 058
     Dates: start: 2008
  25. ICHTHAMMOL,ZINC [Concomitant]
     Indication: SEBORRHOEA
     Route: 062
     Dates: start: 20180614, end: 20180617
  26. VENETOCLAX. [Suspect]
     Active Substance: VENETOCLAX
     Indication: PLASMA CELL MYELOMA
     Dosage: PRIOR TO AE 19JUN2018/22JUN2018
     Route: 048
     Dates: start: 20180605, end: 20180622
  27. ATEZOLIZUMAB. [Suspect]
     Active Substance: ATEZOLIZUMAB
     Indication: PLASMA CELL MYELOMA
     Dosage: D1 AND 15/ 28 D CYCLE
     Route: 042
     Dates: start: 20180605
  28. ETAMSYLATE [Concomitant]
     Active Substance: ETHAMSYLATE
     Indication: HAEMORRHAGE PROPHYLAXIS
     Route: 048
     Dates: start: 20180622, end: 20180624
  29. HEVIRAN [Concomitant]
     Active Substance: ACYCLOVIR
     Route: 048
     Dates: start: 20180911, end: 20180913
  30. INSULIN GLARGINE [Concomitant]
     Active Substance: INSULIN GLARGINE
     Indication: DIABETES MELLITUS
     Route: 058
     Dates: start: 2008
  31. LOPERAMIDE HYDROCHLORIDE. [Concomitant]
     Active Substance: LOPERAMIDE HYDROCHLORIDE
     Indication: DIARRHOEA
     Route: 048
     Dates: start: 20180605, end: 20180605
  32. ROZEX (METRONIDAZOLE) [Concomitant]
     Active Substance: METRONIDAZOLE
     Indication: SEBORRHOEA
     Route: 062
     Dates: start: 20180614, end: 20180717
  33. ENCORTON [Concomitant]
     Active Substance: PREDNISONE
     Indication: DECREASED APPETITE
     Route: 048
     Dates: start: 20180731, end: 20180802

REACTIONS (5)
  - Anaemia [Recovered/Resolved]
  - Anaemia [Recovered/Resolved]
  - Thrombocytopenia [Recovered/Resolved]
  - Neutropenia [Recovered/Resolved]
  - Febrile neutropenia [Recovered/Resolved]

NARRATIVE: CASE EVENT DATE: 20180605
